FAERS Safety Report 5736995-3 (Version None)
Quarter: 2008Q2

REPORT INFORMATION
  Report Type: 
  Country: None (occurrence: None)
  Receive Date: 20080514
  Receipt Date: 20080512
  Transmission Date: 20081010
  Serious: Yes (Hospitalization)
  Sender: FDA-Public Use
  Company Number: ES-BRISTOL-MYERS SQUIBB COMPANY-14187421

PATIENT
  Age: 60 Year
  Sex: Female

DRUGS (5)
  1. BUSPAR [Suspect]
     Indication: OBSESSIVE-COMPULSIVE DISORDER
     Dosage: 10-30 TABLETS. 2 MONTH 1 DAY
     Route: 048
     Dates: start: 20080101, end: 20080302
  2. FLUVOXAMINE MALEATE [Suspect]
     Indication: OBSESSIVE-COMPULSIVE DISORDER
     Dosage: DURATION :2 MONTH 1 DAY
     Route: 048
     Dates: start: 20080101, end: 20080302
  3. RIVOTRIL [Suspect]
     Indication: OBSESSIVE-COMPULSIVE DISORDER
     Dosage: RIVOTRIL 0.5MG-60 TABLETS.DURATION :2 MONTH 1 DAY
     Route: 048
     Dates: start: 20080101, end: 20080302
  4. ZIPRASIDONE HCL [Suspect]
     Indication: OBSESSIVE-COMPULSIVE DISORDER
     Dosage: DURATION :2 MONTH 1 DAY
     Route: 048
     Dates: start: 20080101, end: 20080302
  5. CITALOPRAM HYDROBROMIDE [Concomitant]
     Indication: OBSESSIVE-COMPULSIVE DISORDER
     Dosage: CITALOPRAM HYDROBROMIDE 20MG COATED TABLET. 14 TABLET
     Route: 048
     Dates: start: 20080101

REACTIONS (3)
  - ASPIRATION BRONCHIAL [None]
  - MUSCLE SPASTICITY [None]
  - RESPIRATORY ARREST [None]
